FAERS Safety Report 7642642-6 (Version None)
Quarter: 2011Q3

REPORT INFORMATION
  Report Type: 
  Country: None (occurrence: None)
  Receive Date: 20110728
  Receipt Date: 20110727
  Transmission Date: 20111222
  Serious: Yes (Hospitalization)
  Sender: FDA-Public Use
  Company Number: JP-ABBOTT-11P-087-0710062-00

PATIENT
  Sex: Male
  Weight: 77 kg

DRUGS (9)
  1. RAMOSETRON HYDROCHLORIDE [Concomitant]
     Indication: CROHN'S DISEASE
     Route: 048
     Dates: start: 20090829
  2. HUMIRA [Suspect]
     Route: 058
     Dates: start: 20110123, end: 20110123
  3. HUMIRA [Suspect]
     Route: 058
     Dates: start: 20110108, end: 20110108
  4. ETHYL LOFLAZEPATE [Concomitant]
     Indication: AUTONOMIC NERVOUS SYSTEM IMBALANCE
  5. HUMIRA [Suspect]
     Indication: CROHN'S DISEASE
     Route: 058
     Dates: start: 20110205, end: 20110205
  6. MESALAMINE [Concomitant]
     Indication: CROHN'S DISEASE
     Route: 048
     Dates: start: 20090829
  7. POLYCARBOPHIL CALCIUM [Concomitant]
     Indication: CROHN'S DISEASE
     Route: 048
     Dates: start: 20090829
  8. CLOSTRIDIUM BUTYRICUM [Concomitant]
     Indication: CROHN'S DISEASE
     Route: 048
     Dates: start: 20090829
  9. ETHYL LOFLAZEPATE [Concomitant]
     Indication: CROHN'S DISEASE
     Route: 048
     Dates: start: 20090829

REACTIONS (2)
  - INFECTIOUS PERITONITIS [None]
  - CROHN'S DISEASE [None]
